FAERS Safety Report 6819929-X (Version None)
Quarter: 2010Q3

REPORT INFORMATION
  Report Type: 
  Country: None (occurrence: None)
  Receive Date: 20100707
  Receipt Date: 20100628
  Transmission Date: 20110219
  Serious: Yes (Death)
  Sender: FDA-Public Use
  Company Number: US-ROCHE-656101

PATIENT
  Sex: Male

DRUGS (4)
  1. BEVACIZUMAB [Suspect]
     Indication: NON-SMALL CELL LUNG CANCER
     Dosage: 1300 MG, Q3W
     Route: 065
     Dates: start: 20090630, end: 20090901
  2. TAXOTERE [Concomitant]
     Indication: NON-SMALL CELL LUNG CANCER
     Dosage: 150 MG, Q3W
     Route: 042
     Dates: start: 20090630, end: 20090901
  3. CISPLATIN [Concomitant]
     Indication: NON-SMALL CELL LUNG CANCER
     Dosage: 150 MG, Q3W
     Route: 042
  4. DEXAMETHASONE [Concomitant]
     Indication: INFLAMMATION
     Dosage: 4 MG, Q6H
     Route: 048
     Dates: start: 20090423

REACTIONS (1)
  - NEOPLASM MALIGNANT [None]
